FAERS Safety Report 8517255 (Version 4)
Quarter: 2014Q4

REPORT INFORMATION
  Report Type: Spontaneous
  Country: US (occurrence: US)
  Receive Date: 20120417
  Receipt Date: 20141007
  Transmission Date: 20150529
  Serious: Yes (Other)
  Sender: FDA-Public Use
  Company Number: US-ASTRAZENECA-2011SE21545

PATIENT
  Age: 75 Year
  Sex: Female
  Weight: 77.1 kg

DRUGS (8)
  1. PRILOSEC [Suspect]
     Active Substance: OMEPRAZOLE MAGNESIUM
     Route: 048
  2. JANUVIA [Concomitant]
     Active Substance: SITAGLIPTIN PHOSPHATE
     Indication: DIABETES MELLITUS
     Route: 048
  3. NEXIUM [Suspect]
     Active Substance: ESOMEPRAZOLE MAGNESIUM
     Indication: GASTROOESOPHAGEAL REFLUX DISEASE
     Route: 048
     Dates: start: 201405
  4. BENICAR HCTZ [Concomitant]
     Indication: HYPERTENSION
     Dosage: 40/12.5 MG, DAILY
     Route: 048
     Dates: start: 1990
  5. NEXIUM [Suspect]
     Active Substance: ESOMEPRAZOLE MAGNESIUM
     Indication: GASTROOESOPHAGEAL REFLUX DISEASE
     Route: 048
     Dates: end: 20140926
  6. MONTELUKAST SOD [Concomitant]
     Active Substance: MONTELUKAST SODIUM
     Indication: MULTIPLE ALLERGIES
     Route: 048
     Dates: start: 20140905
  7. MONTELUKAST SOD [Concomitant]
     Active Substance: MONTELUKAST SODIUM
     Indication: SINUS DISORDER
     Route: 048
     Dates: start: 20140905
  8. VITAMIN UNSPECIFIED [Concomitant]

REACTIONS (26)
  - Hyperventilation [Unknown]
  - Dysphagia [Unknown]
  - Intentional product misuse [Unknown]
  - Cataract [Unknown]
  - Astigmatism [Unknown]
  - Cough [Unknown]
  - Attention deficit/hyperactivity disorder [Unknown]
  - Sleep apnoea syndrome [Unknown]
  - Dysphonia [Unknown]
  - Drug ineffective [Unknown]
  - Vomiting [Unknown]
  - Barrett^s oesophagus [Unknown]
  - Oesophageal disorder [Unknown]
  - Nosophobia [Unknown]
  - Off label use [Unknown]
  - Gastrointestinal disorder [Unknown]
  - Mental disorder [Unknown]
  - Dyspepsia [Unknown]
  - Diarrhoea [Unknown]
  - Oesophageal pain [Unknown]
  - Dyspnoea [Unknown]
  - Corneal degeneration [Unknown]
  - Drug dose omission [Unknown]
  - Dyspepsia [Unknown]
  - Panic disorder [Unknown]
  - Nausea [Unknown]

NARRATIVE: CASE EVENT DATE: 2013
